FAERS Safety Report 10237319 (Version 4)
Quarter: 2014Q4

REPORT INFORMATION
  Report Type: Spontaneous
  Country: US (occurrence: US)
  Receive Date: 20140613
  Receipt Date: 20141015
  Transmission Date: 20150528
  Serious: Yes (Hospitalization, Other)
  Sender: FDA-Public Use
  Company Number: US-GILEAD-2014-0105216

PATIENT
  Age: 69 Year
  Sex: Male
  Weight: 104.3 kg

DRUGS (6)
  1. ORENITRAM [Suspect]
     Active Substance: TREPROSTINIL
     Dosage: 1.5 MG, TID
     Route: 048
     Dates: start: 20140826
  2. ORENITRAM [Suspect]
     Active Substance: TREPROSTINIL
     Dosage: 2.5 MG, TID
     Route: 048
     Dates: start: 20140725
  3. ADCIRCA [Concomitant]
     Active Substance: TADALAFIL
  4. ORENITRAM [Suspect]
     Active Substance: TREPROSTINIL
     Dosage: 1.375 MG, TID
     Route: 048
     Dates: end: 20140825
  5. LETAIRIS [Suspect]
     Active Substance: AMBRISENTAN
     Indication: PRODUCT USED FOR UNKNOWN INDICATION
     Dosage: 5 MG, QD
     Route: 065
     Dates: start: 20120905
  6. ORENITRAM [Suspect]
     Active Substance: TREPROSTINIL
     Indication: PULMONARY ARTERIAL HYPERTENSION
     Dosage: 0.625 MG, TID
     Route: 048
     Dates: start: 20140626

REACTIONS (17)
  - Nausea [Recovering/Resolving]
  - Vomiting [Recovered/Resolved]
  - Exercise tolerance decreased [Not Recovered/Not Resolved]
  - Malaise [Recovering/Resolving]
  - Musculoskeletal pain [Not Recovered/Not Resolved]
  - Dizziness [Recovering/Resolving]
  - Chest pain [Recovered/Resolved]
  - Pancreatitis [Recovering/Resolving]
  - Dyspnoea [Not Recovered/Not Resolved]
  - Syncope [Recovered/Resolved]
  - Catheterisation cardiac abnormal [Unknown]
  - Fatigue [Not Recovered/Not Resolved]
  - Nasal congestion [Unknown]
  - Back pain [Recovering/Resolving]
  - Surgery [Unknown]
  - Gastric disorder [Recovering/Resolving]
  - Myalgia [Not Recovered/Not Resolved]

NARRATIVE: CASE EVENT DATE: 201404
